FAERS Safety Report 9373184 (Version 1)
Quarter: 2013Q2

REPORT INFORMATION
  Report Type: Spontaneous
  Country: FR (occurrence: FR)
  Receive Date: 20130627
  Receipt Date: 20130627
  Transmission Date: 20140414
  Serious: Yes (Hospitalization)
  Sender: FDA-Public Use
  Company Number: FR-TEVA-415712ISR

PATIENT
  Sex: Male

DRUGS (1)
  1. FUROSEMIDE [Suspect]

REACTIONS (2)
  - Fall [Unknown]
  - Hip fracture [Unknown]
